FAERS Safety Report 7479295-6 (Version None)
Quarter: 2011Q2

REPORT INFORMATION
  Report Type: 
  Country: None (occurrence: None)
  Receive Date: 20110513
  Receipt Date: 20110505
  Transmission Date: 20111010
  Serious: Yes (Hospitalization)
  Sender: FDA-Public Use
  Company Number: GB-PFIZER INC-2011073659

PATIENT
  Age: 64 Year
  Sex: Female

DRUGS (2)
  1. CELECOXIB [Suspect]
     Dosage: 100 MG, 2X/DAY
     Dates: start: 20100525, end: 20110308
  2. IBUPROFEN [Suspect]
     Indication: OSTEOARTHRITIS
     Dosage: 400 MG, 3X/DAY
     Route: 048
     Dates: start: 20070919, end: 20100817

REACTIONS (2)
  - PERITONITIS [None]
  - APPENDICITIS [None]
